FAERS Safety Report 19280466 (Version 1)
Quarter: 2021Q2

REPORT INFORMATION
  Report Type: Spontaneous
  Country: PL (occurrence: PL)
  Receive Date: 20210520
  Receipt Date: 20210520
  Transmission Date: 20210717
  Serious: Yes (Hospitalization, Other)
  Sender: FDA-Public Use
  Company Number: PL-AMGEN-POLSP2021073429

PATIENT
  Age: 61 Year
  Sex: Male

DRUGS (4)
  1. ADALIMUMAB [Suspect]
     Active Substance: ADALIMUMAB
     Indication: CROHN^S DISEASE
     Dosage: UNK
     Route: 058
     Dates: start: 20160216, end: 201702
  2. ADALIMUMAB [Suspect]
     Active Substance: ADALIMUMAB
     Dosage: UNK
     Route: 058
     Dates: start: 20170517, end: 20180511
  3. ADALIMUMAB [Suspect]
     Active Substance: ADALIMUMAB
     Dosage: UNK
     Route: 058
     Dates: start: 20180801, end: 20190731
  4. ADALIMUMAB [Suspect]
     Active Substance: ADALIMUMAB
     Dosage: UNK
     Route: 058
     Dates: start: 20191010, end: 20200225

REACTIONS (6)
  - Renal function test abnormal [Recovered/Resolved]
  - Therapeutic response decreased [Unknown]
  - Serum amyloid A protein increased [Unknown]
  - Pneumonia [Recovered/Resolved]
  - Nephrotic syndrome [Recovered/Resolved]
  - Crohn^s disease [Unknown]
